FAERS Safety Report 6443719-3 (Version None)
Quarter: 2009Q4

REPORT INFORMATION
  Report Type: 
  Country: None (occurrence: None)
  Receive Date: 20091117
  Receipt Date: 20091103
  Transmission Date: 20100525
  Serious: Yes (Other)
  Sender: FDA-Public Use
  Company Number: US-MYLANLABS-2009S1019112

PATIENT
  Age: 48 Year
  Sex: Male

DRUGS (5)
  1. SELEGILINE HCL [Suspect]
     Indication: PARKINSON'S DISEASE
  2. ROTIGOTINE [Suspect]
     Indication: PARKINSON'S DISEASE
     Dosage: DAILY 30CM2 PATCH
  3. ROTIGOTINE [Suspect]
     Dosage: DAILY 40CM2 PATCH
  4. SINEMET [Concomitant]
     Indication: PARKINSON'S DISEASE
     Dosage: CARBIDOPA 25 MG/DAY, ER LEVODOPA 100MG/DAY; 2 TABLETS/DAY
  5. LEVODOPA [Concomitant]
     Indication: PARKINSON'S DISEASE

REACTIONS (2)
  - OBSESSIVE-COMPULSIVE DISORDER [None]
  - PATHOLOGICAL GAMBLING [None]
